FAERS Safety Report 9788109 (Version 1)
Quarter: 2013Q4

REPORT INFORMATION
  Report Type: Spontaneous
  Country: US (occurrence: None)
  Receive Date: 20131227
  Receipt Date: 20131227
  Transmission Date: 20140711
  Serious: Yes (Hospitalization)
  Sender: FDA-Public Use
  Company Number: None

PATIENT
  Sex: Female
  Weight: 49.8 kg

DRUGS (8)
  1. LANTUS [Suspect]
     Indication: DIABETES MELLITUS
     Dosage: 14UNITS, QHS, SQ
     Route: 058
  2. GLIMEPIRIDE [Suspect]
     Indication: DIABETES MELLITUS
     Dosage: CHRONIC
     Route: 048
  3. RAMIPRIL [Concomitant]
  4. LEVOTHYROXINE [Concomitant]
  5. PERCOCET [Concomitant]
  6. COMPAZINE [Concomitant]
  7. KCL [Concomitant]
  8. ZOLOFT [Concomitant]

REACTIONS (5)
  - Hypoglycaemia [None]
  - Hypophagia [None]
  - Breast cancer metastatic [None]
  - Asthenia [None]
  - Fall [None]
